FAERS Safety Report 9012683 (Version 1)
Quarter: 2013Q1

REPORT INFORMATION
  Report Type: Spontaneous
  Country: US (occurrence: US)
  Receive Date: 20130114
  Receipt Date: 20130114
  Transmission Date: 20140127
  Serious: No
  Sender: FDA-Public Use
  Company Number: US-009507513-1301USA003965

PATIENT
  Sex: 0
  Weight: 63.49 kg

DRUGS (1)
  1. IMPLANON [Suspect]
     Indication: CONTRACEPTION
     Dosage: 1 ROD FOR 3 YEAR USE ON LEFT ARM
     Dates: start: 201106

REACTIONS (3)
  - Anxiety [Unknown]
  - Mood swings [Unknown]
  - Menstruation irregular [Unknown]
